FAERS Safety Report 11256590 (Version 1)
Quarter: 2015Q3

REPORT INFORMATION
  Report Type: Spontaneous
  Country: US (occurrence: US)
  Receive Date: 20150709
  Receipt Date: 20150709
  Transmission Date: 20151125
  Serious: No
  Sender: FDA-Public Use
  Company Number: US-PURDUE-USA-2014-0118345

PATIENT
  Age: 53 Year
  Sex: Male

DRUGS (1)
  1. BUTRANS [Suspect]
     Active Substance: BUPRENORPHINE
     Indication: BACK PAIN
     Dosage: 10 MCG/HR, WEEKLY
     Route: 062
     Dates: start: 20141017

REACTIONS (7)
  - Body temperature increased [Unknown]
  - Breakthrough pain [Unknown]
  - Wrong technique in product usage process [Unknown]
  - Pain [Unknown]
  - Drug ineffective [Unknown]
  - Product adhesion issue [Unknown]
  - Inadequate analgesia [Unknown]

NARRATIVE: CASE EVENT DATE: 20141017
